FAERS Safety Report 5034737-0 (Version None)
Quarter: 2006Q2

REPORT INFORMATION
  Report Type: 
  Country: None (occurrence: None)
  Receive Date: 20060621
  Receipt Date: 20060613
  Transmission Date: 20061013
  Serious: Yes (Other)
  Sender: FDA-Public Use
  Company Number: HQWYE210113JUN06

PATIENT
  Age: 27 Year
  Sex: Male

DRUGS (5)
  1. TAZOCIN (PIPERACILLIN/TAZOBACTAM, INJECTION) [Suspect]
     Indication: LUNG ABSCESS
     Dosage: 4.5 G 3X PER 1 DAY
     Route: 042
  2. TAZOCIN (PIPERACILLIN/TAZOBACTAM, INJECTION) [Suspect]
     Indication: STAPHYLOCOCCAL BACTERAEMIA
     Dosage: 4.5 G 3X PER 1 DAY
     Route: 042
  3. METHADONE HCL [Concomitant]
  4. TRAMADOL HCL [Concomitant]
  5. ZOPICLONE (ZOPICLONE) [Concomitant]

REACTIONS (8)
  - CHILLS [None]
  - HYPERHIDROSIS [None]
  - INFUSION RELATED REACTION [None]
  - NEUTROPENIA [None]
  - PARAESTHESIA [None]
  - PYREXIA [None]
  - THROMBOCYTOPENIA [None]
  - TYPE IV HYPERSENSITIVITY REACTION [None]
